FAERS Safety Report 18999971 (Version 3)
Quarter: 2021Q2

REPORT INFORMATION
  Report Type: Report from Study
  Country: GB (occurrence: GB)
  Receive Date: 20210311
  Receipt Date: 20210604
  Transmission Date: 20210717
  Serious: Yes (Death, Hospitalization, Other)
  Sender: FDA-Public Use
  Company Number: GB-TEVA-2021-GB-1886491

PATIENT
  Age: 60 Year
  Sex: Female

DRUGS (48)
  1. TAXOL [Suspect]
     Active Substance: PACLITAXEL
     Indication: HER2 POSITIVE BREAST CANCER
     Dosage: 111 MILLIGRAM, QW
     Route: 042
     Dates: start: 20151006, end: 20151215
  2. TAXOL [Suspect]
     Active Substance: PACLITAXEL
     Dosage: TAXOL, 84 MG.QW
     Route: 042
     Dates: start: 20160906, end: 20160906
  3. CHLORHEXIDINE GLUCONATE. [Concomitant]
     Active Substance: CHLORHEXIDINE GLUCONATE
     Dosage: 20 ML DAILY; (EVERY 0.5 DAYS), 10 ML
     Route: 044
     Dates: start: 20160913, end: 20160925
  4. CO?AMOXICLAV [Concomitant]
     Active Substance: AMOXICILLIN\CLAVULANATE POTASSIUM
     Dosage: UNK, QD (500/125MG), EVERY 0.33 DAY
     Route: 048
     Dates: start: 20150922, end: 20151004
  5. DEXAMETHASONE. [Concomitant]
     Active Substance: DEXAMETHASONE
     Dosage: 8 MILLIGRAM, QW
     Route: 042
     Dates: start: 20150908, end: 20151215
  6. FLUCONAZOLE. [Concomitant]
     Active Substance: FLUCONAZOLE
     Dosage: 500 MILLIGRAM DAILY; 500 MILLIGRAM, QD
     Route: 048
     Dates: start: 20160912, end: 20160912
  7. GABAPENTIN. [Concomitant]
     Active Substance: GABAPENTIN
     Dosage: 900 MILLIGRAM DAILY; 900 MILLIGRAM, QD
     Route: 048
     Dates: start: 20160118, end: 20160925
  8. HYDROCORTISONE. [Concomitant]
     Active Substance: HYDROCORTISONE
     Dosage: 100 MILLIGRAM, QW
     Route: 042
     Dates: start: 20160906, end: 20160906
  9. PARACETAMOL [Concomitant]
     Active Substance: ACETAMINOPHEN
     Dosage: 500 MILLIGRAM DAILY; 500 MILLIGRAM, QD
     Route: 048
     Dates: end: 20160925
  10. TAZOCIN [Concomitant]
     Active Substance: PIPERACILLIN SODIUM\TAZOBACTAM SODIUM
     Indication: NEUTROPENIA
     Dosage: 18 GRAM DAILY; 18 GRAM, QD
     Route: 042
     Dates: start: 20160911, end: 20160913
  11. TAXOL [Suspect]
     Active Substance: PACLITAXEL
     Dosage: 84 MILLIGRAM TAXOL,QW
     Route: 042
     Dates: start: 20160906, end: 20160906
  12. CHLORPHENAMINE [Concomitant]
     Active Substance: CHLORPHENIRAMINE MALEATE
     Dosage: 10 MILLIGRAM, QW
     Route: 042
     Dates: start: 20160906, end: 20160906
  13. ENALAPRIL [Concomitant]
     Active Substance: ENALAPRIL
     Dosage: 10 MILLIGRAM
     Route: 048
     Dates: start: 20060823, end: 20160901
  14. OMEPRAZOLE. [Concomitant]
     Active Substance: OMEPRAZOLE
     Dosage: 20 MILLIGRAM DAILY; 20 MILLIGRAM, QD
     Route: 048
     Dates: end: 20160106
  15. RANITIDINE. [Concomitant]
     Active Substance: RANITIDINE
     Dosage: 50 MILLIGRAM, QW
     Route: 042
     Dates: start: 20160906, end: 20160906
  16. RANITIDINE. [Concomitant]
     Active Substance: RANITIDINE
     Dosage: 50 MILLIGRAM, QW
     Route: 042
     Dates: start: 20150908, end: 20151215
  17. PACLITAXEL. [Suspect]
     Active Substance: PACLITAXEL
     Dosage: 111 MILLIGRAM, QW (PLANNED NUMBER OF CYCLES COMPLETED)
     Route: 042
     Dates: start: 20151006, end: 20151215
  18. IBUPROFEN. [Concomitant]
     Active Substance: IBUPROFEN
     Dosage: UNK
     Route: 065
     Dates: start: 20160925, end: 20160925
  19. METOCLOPRAMIDE. [Concomitant]
     Active Substance: METOCLOPRAMIDE
     Dosage: 10 MILLIGRAM
     Route: 048
     Dates: start: 20150908, end: 20151215
  20. PEPTAC [Concomitant]
     Active Substance: RANITIDINE HYDROCHLORIDE
     Dosage: AT 10ML
     Dates: end: 20160106
  21. TAXOL [Suspect]
     Active Substance: PACLITAXEL
     Dosage: 141 MILLIGRAM,QW
     Route: 042
     Dates: start: 20150901, end: 20151006
  22. TRASTUZUMAB. [Suspect]
     Active Substance: TRASTUZUMAB
     Indication: HER2 POSITIVE BREAST CANCER
     Dosage: 600 MILLIGRAM, 3XW
     Route: 058
     Dates: start: 20151124, end: 20160823
  23. VORHYALURONIDASE ALFA [Suspect]
     Active Substance: HYALURONIDASE (HUMAN RECOMBINANT)
     Indication: HER2 POSITIVE BREAST CANCER
     Route: 058
     Dates: start: 20151124, end: 20160802
  24. HYALURONIDASE [Suspect]
     Active Substance: HYALURONIDASE
     Indication: HER2 POSITIVE BREAST CANCER
     Dosage: 600 MG, EVERY 3 WEEKS
     Route: 058
     Dates: start: 20151124, end: 20160802
  25. ACICLOVIR [Concomitant]
     Active Substance: ACYCLOVIR
     Dosage: 5 PERCENT
     Route: 061
     Dates: start: 20160913, end: 20160925
  26. CHLORPHENAMINE [Concomitant]
     Active Substance: CHLORPHENIRAMINE MALEATE
     Dosage: 10 MILLIGRAM, QW
     Route: 042
     Dates: start: 20150908, end: 20151215
  27. DEXAMETHASONE. [Concomitant]
     Active Substance: DEXAMETHASONE
     Dosage: 8 MILLIGRAM, QW
     Route: 042
     Dates: start: 20160823, end: 20160906
  28. FRUSEMIDE [Concomitant]
     Active Substance: FUROSEMIDE
     Indication: ASCITES
     Dosage: 20 MILLIGRAM DAILY; 20 MILLIGRAM, QD
     Route: 048
     Dates: start: 20160817, end: 20160925
  29. EPIRUBICIN [Suspect]
     Active Substance: EPIRUBICIN
     Indication: HER2 POSITIVE BREAST CANCER
     Dosage: 50 MILLIGRAM, QW
     Route: 042
     Dates: start: 20160823, end: 20160830
  30. PACLITAXEL. [Suspect]
     Active Substance: PACLITAXEL
     Indication: HER2 POSITIVE BREAST CANCER
     Dosage: 141 MILLIGRAM, QW
     Route: 042
     Dates: start: 20150901, end: 20151006
  31. PACLITAXEL. [Suspect]
     Active Substance: PACLITAXEL
     Dosage: 84 MILLIGRAM, QW
     Route: 042
     Dates: start: 20160906, end: 20160906
  32. TRASTUZUMAB. [Suspect]
     Active Substance: TRASTUZUMAB
     Dosage: 600 MILLIGRAM, Q3W
     Route: 058
     Dates: start: 20151124, end: 20160802
  33. ACICLOVIR [Concomitant]
     Active Substance: ACYCLOVIR
     Dosage: 25 PERCENT DAILY; 25 PERCENT, QD
     Route: 061
     Dates: start: 20160913, end: 20160925
  34. DEXPANTHENOL. [Concomitant]
     Active Substance: DEXPANTHENOL
     Dosage: UNK
     Route: 061
     Dates: start: 20160913, end: 20160914
  35. ACIDEX (CALCIUM CARBONATE/SODIUM ALGINATE/SODIUM BICARBONATE) [Suspect]
     Active Substance: CALCIUM CARBONATE\SODIUM ALGINATE\SODIUM BICARBONATE
     Dosage: 10 MILLILITER
     Route: 048
     Dates: end: 20160106
  36. FLUCONAZOLE. [Concomitant]
     Active Substance: FLUCONAZOLE
     Dosage: 50 MILLIGRAM DAILY; 50 MILLIGRAM, QD
     Route: 048
     Dates: start: 20160908, end: 201609
  37. ONDANSETRON [Concomitant]
     Active Substance: ONDANSETRON
     Dosage: 8 MILLIGRAM, QW
     Route: 048
     Dates: start: 20151006, end: 20151215
  38. BEPANTHEN PLUS [Concomitant]
     Route: 061
     Dates: start: 20160913, end: 20160914
  39. DEXAMETHASONE. [Concomitant]
     Active Substance: DEXAMETHASONE
     Indication: ASCITES
     Dosage: 8 MILLIGRAM DAILY; 8 MILLIGRAM, QD
     Route: 048
     Dates: start: 20160817, end: 20160925
  40. ENALAPRIL [Concomitant]
     Active Substance: ENALAPRIL
     Dosage: 10 MILLIGRAM DAILY; 10 MILLIGRAM, QD
     Route: 048
     Dates: start: 20060823, end: 20160925
  41. ENOXAPARIN [Concomitant]
     Active Substance: ENOXAPARIN
     Dosage: 40 MILLIGRAM
     Route: 058
     Dates: start: 20160817, end: 20160913
  42. HYDROCORTISONE. [Concomitant]
     Active Substance: HYDROCORTISONE
     Dosage: UNK
     Route: 061
     Dates: start: 20160817, end: 20160913
  43. VANCOMYCIN [Concomitant]
     Active Substance: VANCOMYCIN
     Dosage: UNK
     Route: 042
     Dates: start: 20160912, end: 20160913
  44. TAXOL [Suspect]
     Active Substance: PACLITAXEL
     Indication: HER2 POSITIVE BREAST CANCER
     Dosage: TAXOL, 141 MG, QW
     Route: 042
     Dates: start: 20150901, end: 20151006
  45. GENTAMICIN. [Concomitant]
     Active Substance: GENTAMICIN
     Dosage: 320 MILLIGRAM DAILY; 320 MILLIGRAM, QD
     Route: 042
     Dates: start: 20160825, end: 20160827
  46. METOCLOPRAMIDE. [Concomitant]
     Active Substance: METOCLOPRAMIDE
     Dosage: 10 MILLIGRAM
     Route: 048
     Dates: start: 20160823, end: 20160906
  47. ONDANSETRON [Concomitant]
     Active Substance: ONDANSETRON
     Dosage: 8 MILLIGRAM, QW
     Route: 048
     Dates: start: 20150823, end: 20160906
  48. VANCOMYCIN [Concomitant]
     Active Substance: VANCOMYCIN
     Indication: NEUTROPENIA
     Dosage: 1500 MILLIGRAM
     Route: 042
     Dates: start: 20160912, end: 20160912

REACTIONS (13)
  - Aspartate aminotransferase increased [Recovered/Resolved with Sequelae]
  - Blood bilirubin increased [Unknown]
  - Blood alkaline phosphatase increased [Not Recovered/Not Resolved]
  - Nail infection [Unknown]
  - Condition aggravated [Recovered/Resolved with Sequelae]
  - Muscle strain [Recovered/Resolved]
  - Neuropathy peripheral [Unknown]
  - White blood cell count decreased [Recovered/Resolved]
  - Ascites [Recovered/Resolved with Sequelae]
  - Neutropenia [Recovered/Resolved with Sequelae]
  - Diarrhoea [Recovered/Resolved]
  - Epigastric discomfort [Recovered/Resolved]
  - Alanine aminotransferase increased [Recovered/Resolved with Sequelae]

NARRATIVE: CASE EVENT DATE: 20160118
